FAERS Safety Report 18547625 (Version 2)
Quarter: 2020Q4

REPORT INFORMATION
  Report Type: Spontaneous
  Country: US (occurrence: US)
  Receive Date: 20201125
  Receipt Date: 20201203
  Transmission Date: 20210114
  Serious: Yes (Other)
  Sender: FDA-Public Use
  Company Number: US-ALKERMES INC.-ALK-2020-005193

PATIENT
  Sex: Female
  Weight: 63.49 kg

DRUGS (2)
  1. VIVITROL [Suspect]
     Active Substance: NALTREXONE
     Indication: ALCOHOLISM
     Dosage: 380 MILLIGRAM, QMO
     Route: 030
     Dates: start: 202011
  2. VIVITROL [Suspect]
     Active Substance: NALTREXONE
     Dosage: 380 MILLIGRAM, QMO
     Route: 030
     Dates: start: 2019, end: 2019

REACTIONS (5)
  - Procedural pain [Recovered/Resolved]
  - Inadequate analgesia [Recovered/Resolved]
  - Hernia [Not Recovered/Not Resolved]
  - Corneal disorder [Recovered/Resolved]
  - Corneal operation [Recovered/Resolved]

NARRATIVE: CASE EVENT DATE: 2020
